FAERS Safety Report 6262140-4 (Version None)
Quarter: 2009Q3

REPORT INFORMATION
  Report Type: 
  Country: None (occurrence: None)
  Receive Date: 20090709
  Receipt Date: 20090629
  Transmission Date: 20100115
  Serious: Yes (Hospitalization)
  Sender: FDA-Public Use
  Company Number: FR-JNJFOC-20090701823

PATIENT
  Sex: Female

DRUGS (3)
  1. TOPALGIC [Suspect]
     Indication: ARTHRALGIA
     Route: 048
     Dates: start: 20090514, end: 20090611
  2. VOLTAREN [Suspect]
     Indication: OSTEOARTHRITIS
     Route: 048
     Dates: start: 20090514, end: 20090611
  3. OMEPRAZOLE [Suspect]
     Indication: PROPHYLAXIS
     Route: 048
     Dates: start: 20090514, end: 20090611

REACTIONS (1)
  - LEUKOCYTOCLASTIC VASCULITIS [None]
